FAERS Safety Report 20219062 (Version 1)
Quarter: 2021Q4

REPORT INFORMATION
  Report Type: Spontaneous
  Country: US (occurrence: None)
  Receive Date: 20211222
  Receipt Date: 20211222
  Transmission Date: 20220303
  Serious: Yes (Other)
  Sender: FDA-Public Use
  Company Number: None

PATIENT
  Age: 55 Year
  Sex: Female
  Weight: 165.01 kg

DRUGS (1)
  1. ARISTADA [Suspect]
     Active Substance: ARIPIPRAZOLE LAUROXIL
     Dosage: FREQUENCY : MONTHLY;?
     Route: 030
     Dates: start: 20210930, end: 20211119

REACTIONS (7)
  - Weight increased [None]
  - Somnolence [None]
  - Injection site pain [None]
  - Breast tenderness [None]
  - Arthralgia [None]
  - Headache [None]
  - Nausea [None]

NARRATIVE: CASE EVENT DATE: 20211008
